FAERS Safety Report 5652582-X (Version None)
Quarter: 2008Q1

REPORT INFORMATION
  Report Type: 
  Country: None (occurrence: None)
  Receive Date: 20080306
  Receipt Date: 20080218
  Transmission Date: 20080703
  Serious: Yes (Hospitalization)
  Sender: FDA-Public Use
  Company Number: AT-ASTRAZENECA-2008SE00539

PATIENT
  Sex: Female

DRUGS (8)
  1. BLOPRESS PLUS [Suspect]
     Indication: HYPERTENSION
     Dosage: CANDESARTAN CILEXETIL 16 MG/HYDROCHLOROTHIAZIDE 12.5 MG
     Route: 048
     Dates: start: 20060801
  2. AMLODIPINE [Concomitant]
     Route: 048
  3. LANSOBENE [Concomitant]
     Route: 048
  4. SIMVASTATIN [Concomitant]
     Route: 048
  5. PLAVIX [Concomitant]
     Route: 048
  6. CIPRALEX [Concomitant]
     Route: 048
  7. CAL-D-VITA [Concomitant]
     Route: 065
  8. SPASMOLYT [Concomitant]
     Route: 048

REACTIONS (7)
  - ANXIETY [None]
  - HYPOCHLORAEMIA [None]
  - HYPOKALAEMIA [None]
  - HYPONATRAEMIA [None]
  - NAUSEA [None]
  - TREMOR [None]
  - VERTIGO [None]
